FAERS Safety Report 4505120-9 (Version None)
Quarter: 2004Q4

REPORT INFORMATION
  Report Type: 
  Country: None (occurrence: None)
  Receive Date: 20041021
  Receipt Date: 20040810
  Transmission Date: 20050328
  Serious: No
  Sender: FDA-Public Use
  Company Number: 2004228632US

PATIENT

DRUGS (1)
  1. SOMAVERT [Suspect]
     Dates: start: 20040701

REACTIONS (3)
  - GINGIVAL PAIN [None]
  - LYMPHADENOPATHY [None]
  - PHARYNGOLARYNGEAL PAIN [None]
